FAERS Safety Report 6085287-4 (Version None)
Quarter: 2009Q1

REPORT INFORMATION
  Report Type: 
  Country: None (occurrence: None)
  Receive Date: 20090220
  Receipt Date: 20090216
  Transmission Date: 20090719
  Serious: Yes (Death, Life-Threatening, Hospitalization)
  Sender: FDA-Public Use
  Company Number: US-BAYER-BG-2005-026681

PATIENT
  Age: 51 Year
  Sex: Male
  Weight: 82 kg

DRUGS (13)
  1. FLUDARABINE PHOSPHATE [Suspect]
     Indication: CHRONIC LYMPHOCYTIC LEUKAEMIA
     Route: 042
     Dates: start: 20050705, end: 20050709
  2. FLUDARABINE PHOSPHATE [Suspect]
     Route: 042
     Dates: start: 20050802, end: 20050806
  3. FLUDARABINE PHOSPHATE [Suspect]
     Route: 042
     Dates: start: 20050830, end: 20050830
  4. FLUDARABINE PHOSPHATE [Suspect]
     Route: 042
     Dates: start: 20050831, end: 20050903
  5. FLUDARABINE PHOSPHATE [Suspect]
     Route: 042
     Dates: start: 20050927, end: 20051001
  6. FLUDARABINE PHOSPHATE [Suspect]
     Route: 042
     Dates: start: 20051025, end: 20051029
  7. FLUDARABINE PHOSPHATE [Suspect]
     Route: 042
     Dates: start: 20051125, end: 20051129
  8. FRESH FROZEN PLASMA [Concomitant]
     Indication: HYPOALBUMINAEMIA
     Route: 042
     Dates: start: 20051208, end: 20051208
  9. HEPARIN [Concomitant]
     Indication: ANTICOAGULANT THERAPY
     Route: 042
     Dates: start: 20051208, end: 20051209
  10. DEXTROSE 5% [Concomitant]
     Indication: POISONING
     Dosage: UNIT DOSE: 5 %
     Route: 042
     Dates: start: 20051202, end: 20051209
  11. SALINE [Concomitant]
     Indication: POISONING
     Route: 042
     Dates: start: 20051202, end: 20051209
  12. SULFAMETHOXAZOLE AND TRIMETHOPRIM [Concomitant]
     Indication: PROPHYLAXIS
     Route: 048
     Dates: start: 20050705, end: 20051208
  13. ACYCLOVIR [Concomitant]
     Indication: PROPHYLAXIS
     Route: 048
     Dates: start: 20050705, end: 20051208

REACTIONS (7)
  - BRAIN OEDEMA [None]
  - CARDIOVASCULAR INSUFFICIENCY [None]
  - ERYSIPELAS [None]
  - MALIGNANT NEOPLASM PROGRESSION [None]
  - PNEUMOCOCCAL SEPSIS [None]
  - PNEUMONIA STREPTOCOCCAL [None]
  - RESPIRATORY FAILURE [None]
